FAERS Safety Report 13668910 (Version 2)
Quarter: 2017Q2

REPORT INFORMATION
  Report Type: Report from Study
  Country: US (occurrence: US)
  Receive Date: 20170620
  Receipt Date: 20170621
  Transmission Date: 20170830
  Serious: Yes (Hospitalization)
  Sender: FDA-Public Use
  Company Number: US-GLAXOSMITHKLINE-US2017GSK091888

PATIENT
  Age: 7 Year
  Sex: Female

DRUGS (26)
  1. CICLOSPORIN [Suspect]
     Active Substance: CYCLOSPORINE
     Dosage: 100 MG, QD
     Dates: start: 20160309, end: 20160819
  2. ACTEMRA [Suspect]
     Active Substance: TOCILIZUMAB
     Indication: JUVENILE IDIOPATHIC ARTHRITIS
     Dosage: 500 MG, QD
     Dates: start: 20160621, end: 20160719
  3. TRI-VITAMIN [Concomitant]
     Dosage: UNK
     Dates: start: 20160912
  4. RELAFEN [Suspect]
     Active Substance: NABUMETONE
     Indication: JUVENILE IDIOPATHIC ARTHRITIS
     Dosage: 500 MG, QD
     Dates: start: 20151028, end: 20151118
  5. NAPROSYN [Suspect]
     Active Substance: NAPROXEN
     Dosage: 500 MG, QD
     Dates: start: 20160113, end: 20160413
  6. RELAFEN [Suspect]
     Active Substance: NABUMETONE
     Dosage: 750 MG, QD
     Dates: start: 20151118, end: 20151219
  7. KINERET [Suspect]
     Active Substance: ANAKINRA
     Indication: JUVENILE IDIOPATHIC ARTHRITIS
     Dosage: 100 MG, QD
     Dates: start: 20160113, end: 20160211
  8. ENALAPRIL [Concomitant]
     Active Substance: ENALAPRIL
     Dosage: UNK
     Dates: start: 20160921
  9. OMEPRAZOLE. [Concomitant]
     Active Substance: OMEPRAZOLE
     Dosage: UNK
     Dates: start: 20170214
  10. ILARIS [Suspect]
     Active Substance: CANAKINUMAB
     Indication: JUVENILE IDIOPATHIC ARTHRITIS
     Dosage: 180 MG, QD
     Dates: start: 20160325, end: 20160413
  11. DICLOFENAC SODIUM. [Suspect]
     Active Substance: DICLOFENAC SODIUM
     Indication: JUVENILE IDIOPATHIC ARTHRITIS
     Dosage: 100 MG, QD
     Dates: start: 20151209, end: 20160113
  12. CICLOSPORIN [Suspect]
     Active Substance: CYCLOSPORINE
     Dosage: 150 MG, QD
     Dates: start: 20160211, end: 20160509
  13. KINERET [Suspect]
     Active Substance: ANAKINRA
     Dosage: 100 MG, QD
     Dates: start: 20160211, end: 20160224
  14. HUMIRA [Suspect]
     Active Substance: ADALIMUMAB
     Indication: JUVENILE IDIOPATHIC ARTHRITIS
     Dosage: 40 MG, QD
     Dates: start: 20160106, end: 20160113
  15. CLOTRIMAZOLE CREAM [Concomitant]
     Active Substance: CLOTRIMAZOLE
     Dosage: UNK
     Dates: start: 20170524
  16. NAPROXEN. [Concomitant]
     Active Substance: NAPROXEN
     Dosage: UNK
     Dates: start: 20160420
  17. CICLOSPORIN [Suspect]
     Active Substance: CYCLOSPORINE
     Indication: JUVENILE IDIOPATHIC ARTHRITIS
     Dosage: 100 MG, QD
     Dates: start: 20160113, end: 20160211
  18. NAPROSYN [Suspect]
     Active Substance: NAPROXEN
     Indication: JUVENILE IDIOPATHIC ARTHRITIS
     Dosage: 500 MG, UNK
     Dates: start: 20150901, end: 20151028
  19. NAPROSYN [Suspect]
     Active Substance: NAPROXEN
     Dosage: 500 MG, UNK
     Dates: start: 20160420
  20. PREDNISONE. [Concomitant]
     Active Substance: PREDNISONE
     Dosage: UNK
     Dates: start: 20170510
  21. ACTEMRA [Suspect]
     Active Substance: TOCILIZUMAB
     Dosage: 460 MG, QD
     Dates: start: 20160823, end: 20170419
  22. RANITIDINE HYDROCHLORIDE. [Concomitant]
     Active Substance: RANITIDINE HYDROCHLORIDE
     Dosage: UNK
     Dates: start: 20170524
  23. ILARIS [Suspect]
     Active Substance: CANAKINUMAB
     Dosage: 180 MG, QD
     Dates: start: 20160428, end: 20160608
  24. CICLOSPORIN [Suspect]
     Active Substance: CYCLOSPORINE
     Dosage: 100 MG, QD
     Dates: start: 20160826, end: 20160906
  25. FERROUS SULFATE + FOLIC ACID [Concomitant]
     Dosage: UNK
     Dates: start: 20160803
  26. LORATADINE. [Concomitant]
     Active Substance: LORATADINE
     Dosage: UNK
     Dates: start: 20161018

REACTIONS (13)
  - Paronychia [Unknown]
  - Swelling [Unknown]
  - Tenderness [Unknown]
  - Erythema [Unknown]
  - Obesity [Unknown]
  - Rash erythematous [Unknown]
  - Paronychia [Recovering/Resolving]
  - Paronychia [Recovered/Resolved]
  - Nail bed bleeding [Unknown]
  - Onychalgia [Recovered/Resolved]
  - Wound secretion [Unknown]
  - Urinary tract infection [Unknown]
  - Paronychia [Recovered/Resolved]

NARRATIVE: CASE EVENT DATE: 20160611
